FAERS Safety Report 4646372-4 (Version None)
Quarter: 2005Q2

REPORT INFORMATION
  Report Type: 
  Country: None (occurrence: None)
  Receive Date: 20050422
  Receipt Date: 20050422
  Transmission Date: 20051028
  Serious: Yes (Hospitalization)
  Sender: FDA-Public Use
  Company Number: None

PATIENT
  Age: 55 Year
  Sex: Male
  Weight: 79.4 kg

DRUGS (7)
  1. BACTRIM DS [Suspect]
  2. TRAMADOL HCL [Concomitant]
  3. SERTRALINE HCL [Concomitant]
  4. APAP 325/BUTALBITAL 50/CAFF [Concomitant]
  5. AMOXICILLIN [Concomitant]
  6. ASCORBIC ACID [Concomitant]
  7. BUSPIRONE HCL [Concomitant]

REACTIONS (1)
  - RASH [None]
